FAERS Safety Report 20701348 (Version 1)
Quarter: 2022Q2

REPORT INFORMATION
  Report Type: Report from Study
  Country: CA (occurrence: CA)
  Receive Date: 20220412
  Receipt Date: 20220412
  Transmission Date: 20220721
  Serious: Yes (Other)
  Sender: FDA-Public Use
  Company Number: CA-TAKEDA-2022TUS023987

PATIENT
  Age: 57 Year
  Sex: Female

DRUGS (1)
  1. VEDOLIZUMAB [Suspect]
     Active Substance: VEDOLIZUMAB
     Indication: Crohn^s disease
     Dosage: 300 MILLIGRAM
     Route: 042
     Dates: start: 20220209

REACTIONS (5)
  - Haemorrhage [Unknown]
  - Haemoglobin decreased [Unknown]
  - Abdominal pain [Unknown]
  - Malaise [Unknown]
  - Adverse event [Unknown]

NARRATIVE: CASE EVENT DATE: 20220322
